FAERS Safety Report 6020580-2 (Version None)
Quarter: 2008Q4

REPORT INFORMATION
  Report Type: 
  Country: None (occurrence: None)
  Receive Date: 20081227
  Receipt Date: 20081218
  Transmission Date: 20090506
  Serious: Yes (Hospitalization)
  Sender: FDA-Public Use
  Company Number: JP-JNJFOC-20081204702

PATIENT
  Sex: Male
  Weight: 79 kg

DRUGS (1)
  1. TRAMADOL HCL [Suspect]
     Indication: PAIN
     Dosage: 1-4 DOSE(S) DAILY
     Route: 048

REACTIONS (1)
  - CEREBRAL INFARCTION [None]
